FAERS Safety Report 8472975-5 (Version None)
Quarter: 2012Q2

REPORT INFORMATION
  Report Type: 
  Country: None (occurrence: None)
  Receive Date: 20120627
  Receipt Date: 20120625
  Transmission Date: 20120825
  Serious: No
  Sender: FDA-Public Use
  Company Number: US-BAYER-2012-063470

PATIENT
  Age: 80 Year
  Sex: Female
  Weight: 75 kg

DRUGS (5)
  1. VITAMIN D [Concomitant]
  2. ALEVE (CAPLET) [Suspect]
     Indication: ARTHRALGIA
     Dosage: 2 U, PRN
     Route: 048
     Dates: start: 20110101
  3. ASPIRIN [Concomitant]
     Indication: ISCHAEMIC HEART DISEASE PROPHYLAXIS
  4. UNKNOWN [Concomitant]
  5. SIMVASTATIN [Concomitant]

REACTIONS (1)
  - NO ADVERSE EVENT [None]
